FAERS Safety Report 13049276 (Version 2)
Quarter: 2017Q1

REPORT INFORMATION
  Report Type: Report from Study
  Country: NL (occurrence: NL)
  Receive Date: 20161221
  Receipt Date: 20170207
  Transmission Date: 20170428
  Serious: Yes (Hospitalization)
  Sender: FDA-Public Use
  Company Number: NL-ROCHE-1832487

PATIENT
  Age: 61 Year
  Sex: Female

DRUGS (4)
  1. BEVACIZUMAB [Suspect]
     Active Substance: BEVACIZUMAB
     Indication: COLORECTAL CANCER METASTATIC
     Dosage: 25 MG/ML
     Route: 042
     Dates: start: 201602
  2. CAPECITABINE. [Suspect]
     Active Substance: CAPECITABINE
     Dosage: LATEST CYCLE (CYCLE 7) AS MONOTHERAPY.
     Route: 048
     Dates: start: 20161123
  3. CAPECITABINE. [Suspect]
     Active Substance: CAPECITABINE
     Indication: COLORECTAL CANCER METASTATIC
     Dosage: 500 MG; 12/MAY/2016 (COURSE 4 CONCLUDED); 26/AUG/2016 ( STARTED COURSE 5); CAPOX
     Route: 048
     Dates: start: 201602
  4. OXALIPLATIN. [Suspect]
     Active Substance: OXALIPLATIN
     Indication: COLORECTAL CANCER METASTATIC
     Dosage: 5 MG/ML; 12/MAY/2016 (COURSE 4 CONCLUDED)
     Route: 042
     Dates: start: 201602

REACTIONS (2)
  - Hepatic pain [Recovered/Resolved with Sequelae]
  - Hepatic pain [Recovered/Resolved]

NARRATIVE: CASE EVENT DATE: 20160906
